FAERS Safety Report 18271761 (Version 1)
Quarter: 2020Q3

REPORT INFORMATION
  Report Type: Spontaneous
  Country: CA (occurrence: CA)
  Receive Date: 20200916
  Receipt Date: 20200916
  Transmission Date: 20201103
  Serious: Yes (Other)
  Sender: FDA-Public Use
  Company Number: CA-SUN PHARMACEUTICAL INDUSTRIES LTD-2020R1-260593

PATIENT
  Age: 56 Year
  Sex: Female

DRUGS (1)
  1. METHOTREXATE. [Suspect]
     Active Substance: METHOTREXATE
     Indication: DERMATITIS EXFOLIATIVE GENERALISED
     Dosage: 7.5 MILLIGRAM(EVERY 12 HOURS FOR 7 DAYS)
     Route: 048

REACTIONS (4)
  - Inappropriate schedule of product administration [Unknown]
  - Neutropenia [Recovered/Resolved]
  - Skin ulcer [Unknown]
  - Pancytopenia [Unknown]
